FAERS Safety Report 8052302-8 (Version None)
Quarter: 2012Q1

REPORT INFORMATION
  Report Type: 
  Country: None (occurrence: None)
  Receive Date: 20120118
  Receipt Date: 20120109
  Transmission Date: 20120608
  Serious: Yes (Hospitalization)
  Sender: FDA-Public Use
  Company Number: US-BAYER-2010-002561

PATIENT
  Sex: Female
  Weight: 68 kg

DRUGS (5)
  1. YASMIN [Suspect]
     Dosage: UNK
     Route: 048
     Dates: start: 19980701, end: 20050401
  2. METFORMIN HCL [Concomitant]
     Indication: DIABETES MELLITUS
     Dosage: UNK
     Dates: start: 20071101, end: 20081101
  3. AZITHROMYCIN [Concomitant]
     Dosage: UNK
     Route: 048
     Dates: start: 20060301, end: 20090301
  4. PHENAZOPYRIDINE HCL TAB [Concomitant]
  5. YAZ [Suspect]
     Dosage: UNK
     Route: 048
     Dates: start: 20051001, end: 20081101

REACTIONS (2)
  - GALLBLADDER INJURY [None]
  - CHOLECYSTITIS INFECTIVE [None]
